FAERS Safety Report 21025059 (Version 1)
Quarter: 2022Q2

REPORT INFORMATION
  Report Type: Spontaneous
  Country: IT (occurrence: IT)
  Receive Date: 20220629
  Receipt Date: 20220629
  Transmission Date: 20220721
  Serious: Yes (Hospitalization)
  Sender: FDA-Public Use
  Company Number: IT-STRIDES ARCOLAB LIMITED-2022SP007772

PATIENT

DRUGS (1)
  1. HALOPERIDOL [Suspect]
     Active Substance: HALOPERIDOL
     Indication: Schizoaffective disorder
     Dosage: 3 MILLIGRAM, DEFINED DAILY DOSE: 8MG
     Route: 065

REACTIONS (2)
  - Sedation [Unknown]
  - Somnolence [Unknown]
